FAERS Safety Report 7919264-2 (Version None)
Quarter: 2011Q4

REPORT INFORMATION
  Report Type: 
  Country: None (occurrence: None)
  Receive Date: 20111116
  Receipt Date: 20111116
  Transmission Date: 20120403
  Serious: Yes (Hospitalization)
  Sender: FDA-Public Use
  Company Number: None

PATIENT
  Age: 78 Year
  Sex: Male
  Weight: 106.7 kg

DRUGS (15)
  1. WARFARIN SODIUM [Suspect]
     Indication: CORONARY ARTERY DISEASE
     Dosage: 6MG/9MG WDAY EXCEPT/ FR DAY PO/PO CHRONIC
     Route: 048
  2. RAMIPRIL [Concomitant]
  3. VICTOZA [Concomitant]
  4. LASIX [Concomitant]
  5. METFORMIN HCL [Concomitant]
  6. POTASSIUM CHLORIDE [Concomitant]
  7. ISOSORBIDE MAN. [Concomitant]
  8. LATANOPROST [Concomitant]
  9. COREG [Concomitant]
  10. GLIPIZIDE [Concomitant]
  11. FINASTERIDE [Concomitant]
  12. NITROGLYCERIN [Concomitant]
  13. TAMSULOSIN HCL [Concomitant]
  14. ASPIRIN [Suspect]
     Indication: CORONARY ARTERY DISEASE
     Dosage: 81MG DAILY PO CHRONIC
     Route: 048
  15. LYRICA [Concomitant]

REACTIONS (6)
  - HYPOTENSION [None]
  - HAEMORRHAGIC ANAEMIA [None]
  - CARDIAC FAILURE CONGESTIVE [None]
  - GASTROINTESTINAL HAEMORRHAGE [None]
  - RENAL FAILURE ACUTE [None]
  - OCCULT BLOOD POSITIVE [None]
